FAERS Safety Report 23300279 (Version 7)
Quarter: 2024Q3

REPORT INFORMATION
  Report Type: Report from Study
  Country: CN (occurrence: CN)
  Receive Date: 20231215
  Receipt Date: 20240805
  Transmission Date: 20241017
  Serious: Yes (Hospitalization, Other)
  Sender: TAKEDA
  Company Number: CN-TAKEDA-2023TUS068594

PATIENT
  Age: 66 Year
  Sex: Female
  Weight: 43 kg

DRUGS (2)
  1. VEDOLIZUMAB [Suspect]
     Active Substance: VEDOLIZUMAB
     Indication: Colitis ulcerative
     Dosage: 300 MILLIGRAM
     Route: 042
     Dates: start: 20221116
  2. MESALAMINE [Concomitant]
     Active Substance: MESALAMINE
     Indication: Inflammatory bowel disease
     Dosage: 2 GRAM, BID
     Route: 048
     Dates: start: 20221110, end: 20221125

REACTIONS (7)
  - Cytomegalovirus colitis [Recovered/Resolved]
  - Epstein-Barr virus infection [Recovered/Resolved]
  - Gastric polyps [Recovered/Resolved]
  - Polyp [Recovered/Resolved]
  - Pharyngeal swelling [Not Recovered/Not Resolved]
  - Blood potassium decreased [Recovered/Resolved]
  - Cough [Recovered/Resolved]

NARRATIVE: CASE EVENT DATE: 20221212
